FAERS Safety Report 23856200 (Version 2)
Quarter: 2024Q2

REPORT INFORMATION
  Report Type: Spontaneous
  Country: US (occurrence: US)
  Receive Date: 20240515
  Receipt Date: 20240626
  Transmission Date: 20240716
  Serious: No
  Sender: FDA-Public Use
  Company Number: US-TARSUS PHARMACEUTICALS-TSP-US-2024-000062

PATIENT
  Sex: Female

DRUGS (2)
  1. XDEMVY [Suspect]
     Active Substance: LOTILANER
     Indication: Eyelid infection
     Dosage: 1 DROP, BID (AM AND PM ON BOTH EYES)
     Route: 047
     Dates: start: 20240214, end: 20240216
  2. XDEMVY [Suspect]
     Active Substance: LOTILANER
     Indication: Chalazion

REACTIONS (2)
  - Product use in unapproved indication [Unknown]
  - Suspected product contamination [Unknown]

NARRATIVE: CASE EVENT DATE: 20240214
